FAERS Safety Report 7228406-6 (Version None)
Quarter: 2011Q1

REPORT INFORMATION
  Report Type: 
  Country: None (occurrence: None)
  Receive Date: 20110114
  Receipt Date: 20110107
  Transmission Date: 20110831
  Serious: Yes (Other)
  Sender: FDA-Public Use
  Company Number: US-RB-020420-11

PATIENT
  Sex: Male

DRUGS (2)
  1. OPIOID [Suspect]
     Indication: PRODUCT USED FOR UNKNOWN INDICATION
     Dosage: DOSING INFORMATION UNKNOWN
     Route: 065
  2. SUBOXONE [Suspect]
     Indication: PRODUCT USED FOR UNKNOWN INDICATION
     Dosage: DOSING INFORMATION UNKNOWN
     Route: 065

REACTIONS (6)
  - SUICIDAL IDEATION [None]
  - ABDOMINAL DISCOMFORT [None]
  - SPEECH DISORDER [None]
  - SUBSTANCE ABUSE [None]
  - APATHY [None]
  - DISTURBANCE IN ATTENTION [None]
